FAERS Safety Report 21919273 (Version 2)
Quarter: 2023Q1

REPORT INFORMATION
  Report Type: Other
  Country: IN (occurrence: None)
  Receive Date: 20230127
  Receipt Date: 20230131
  Transmission Date: 20230418
  Serious: Yes (Death)
  Sender: FDA-Public Use
  Company Number: IN-ROCHE-3227689

PATIENT
  Age: 63 Year
  Sex: Male
  Weight: 125.2 kg

DRUGS (1)
  1. TECENTRIQ [Suspect]
     Active Substance: ATEZOLIZUMAB
     Indication: Cholangiocarcinoma
     Route: 042
     Dates: start: 20221112

REACTIONS (2)
  - Death [Fatal]
  - Off label use [Unknown]
